FAERS Safety Report 6347406-1 (Version None)
Quarter: 2009Q3

REPORT INFORMATION
  Report Type: 
  Country: None (occurrence: None)
  Receive Date: 20090910
  Receipt Date: 20090908
  Transmission Date: 20100115
  Serious: Yes (Life-Threatening, Hospitalization)
  Sender: FDA-Public Use
  Company Number: US-B.I. PHARMACEUTICALS,INC./RIDGEFIELD-2009-BP-10183BP

PATIENT
  Sex: Male

DRUGS (10)
  1. SPIRIVA [Suspect]
     Indication: CHRONIC OBSTRUCTIVE PULMONARY DISEASE
     Dosage: 18 MCG
     Route: 055
     Dates: start: 20070101
  2. VICODIN [Concomitant]
     Indication: ARTHRITIS
  3. ALBUTEROL [Concomitant]
  4. ALPRAZOLAM [Concomitant]
  5. STOOL SOFTENER [Concomitant]
  6. PREDNISONE TAB [Concomitant]
  7. CITALOPRAM HYDROBROMIDE [Concomitant]
  8. MIRALAX [Concomitant]
  9. DUONEY [Concomitant]
  10. OXYGEN [Concomitant]

REACTIONS (4)
  - CARDIAC ARREST [None]
  - CONSTIPATION [None]
  - LOSS OF CONSCIOUSNESS [None]
  - VISUAL ACUITY REDUCED [None]
